FAERS Safety Report 5221922-8 (Version None)
Quarter: 2007Q1

REPORT INFORMATION
  Report Type: 
  Country: None (occurrence: None)
  Receive Date: 20070129
  Receipt Date: 20060106
  Transmission Date: 20070707
  Serious: No
  Sender: FDA-Public Use
  Company Number: US-GLAXOSMITHKLINE-A0588124A

PATIENT
  Sex: Female

DRUGS (2)
  1. WELLBUTRIN [Suspect]
     Indication: DRUG USE FOR UNKNOWN INDICATION
     Dosage: 200MG UNKNOWN
     Route: 048
  2. WELLBUTRIN [Suspect]
     Dosage: 300MG UNKNOWN
     Route: 048

REACTIONS (5)
  - ANXIETY [None]
  - DRUG INEFFECTIVE [None]
  - DRY MOUTH [None]
  - INSOMNIA [None]
  - TREMOR [None]
